FAERS Safety Report 10147207 (Version 1)
Quarter: 2014Q2

REPORT INFORMATION
  Report Type: Spontaneous
  Country: US (occurrence: US)
  Receive Date: 20140501
  Receipt Date: 20140501
  Transmission Date: 20141212
  Serious: Yes (Hospitalization)
  Sender: FDA-Public Use
  Company Number: US-INCYTE CORPORATION-2014IN001140

PATIENT
  Age: 72 Year
  Sex: Male

DRUGS (2)
  1. JAKAFI [Suspect]
     Indication: SPLENOMEGALY
     Dosage: 5 MG, BID
     Route: 048
  2. JAKAFI [Suspect]
     Dosage: 5 MG, QD
     Route: 048

REACTIONS (3)
  - Pyrexia [Recovering/Resolving]
  - Epistaxis [Recovering/Resolving]
  - Platelet count decreased [Recovering/Resolving]
